FAERS Safety Report 11897092 (Version 1)
Quarter: 2016Q1

REPORT INFORMATION
  Report Type: Spontaneous
  Country: NO (occurrence: NO)
  Receive Date: 20160107
  Receipt Date: 20160107
  Transmission Date: 20160526
  Serious: Yes (Disabling, Other)
  Sender: FDA-Public Use
  Company Number: NO-AMGEN-NORSP2015141172

PATIENT
  Age: 49 Year
  Sex: Male

DRUGS (3)
  1. BRICANYL [Concomitant]
     Active Substance: TERBUTALINE SULFATE
     Indication: ASTHMA
     Dosage: UNK UNK, UNK
     Route: 055
  2. ENBREL [Suspect]
     Active Substance: ETANERCEPT
     Indication: PSORIATIC ARTHROPATHY
     Dosage: 50 MG
     Route: 051
     Dates: start: 20150617, end: 20150924
  3. SIMPONI [Suspect]
     Active Substance: GOLIMUMAB
     Indication: PSORIATIC ARTHROPATHY
     Dosage: 50 MG
     Route: 051
     Dates: start: 20140429, end: 20141001

REACTIONS (7)
  - Psoriatic arthropathy [Unknown]
  - Condition aggravated [Unknown]
  - Hypoaesthesia [Unknown]
  - Sensorimotor disorder [Not Recovered/Not Resolved]
  - Peripheral sensory neuropathy [Not Recovered/Not Resolved]
  - Paraesthesia [Unknown]
  - Demyelinating polyneuropathy [Not Recovered/Not Resolved]

NARRATIVE: CASE EVENT DATE: 201410
